FAERS Safety Report 9800417 (Version 2)
Quarter: 2014Q1

REPORT INFORMATION
  Report Type: Spontaneous
  Country: US (occurrence: US)
  Receive Date: 20140107
  Receipt Date: 20140122
  Transmission Date: 20141002
  Serious: Yes (Death)
  Sender: FDA-Public Use
  Company Number: US-ROCHE-1329874

PATIENT
  Age: 51 Year
  Sex: Male

DRUGS (14)
  1. ACTEMRA [Suspect]
     Indication: RHEUMATOID ARTHRITIS
     Route: 042
     Dates: start: 20111101, end: 20131213
  2. LEVEMIR [Concomitant]
     Indication: DIABETES MELLITUS
  3. PRAVASTATIN [Concomitant]
     Indication: BLOOD CHOLESTEROL
     Route: 048
  4. PRAVASTATIN [Concomitant]
     Route: 048
  5. LISINOPRIL [Concomitant]
     Indication: HYPERTENSION
     Route: 048
  6. METHOTREXATE [Concomitant]
     Indication: RHEUMATOID ARTHRITIS
     Route: 048
  7. PREDNISOLONE [Concomitant]
     Indication: RHEUMATOID ARTHRITIS
     Route: 048
  8. ZETIA [Concomitant]
     Indication: DIABETES MELLITUS
     Route: 065
  9. ASA [Concomitant]
     Route: 065
  10. PRILOSEC [Concomitant]
     Indication: GASTROOESOPHAGEAL REFLUX DISEASE
     Route: 065
  11. LEXAPRO [Concomitant]
     Indication: DEPRESSION
     Route: 065
  12. METFORMIN [Concomitant]
     Route: 065
  13. ACTONEL [Concomitant]
     Indication: OSTEOPOROSIS
     Route: 048
  14. SPIRONOLACTONE [Concomitant]
     Route: 048

REACTIONS (5)
  - Pancreatitis [Fatal]
  - Nausea [Fatal]
  - Vomiting [Fatal]
  - Abdominal pain [Fatal]
  - Back pain [Fatal]
